FAERS Safety Report 11320615 (Version 2)
Quarter: 2015Q3

REPORT INFORMATION
  Report Type: Spontaneous
  Country: US (occurrence: US)
  Receive Date: 20150729
  Receipt Date: 20150731
  Transmission Date: 20151125
  Serious: Yes (Hospitalization)
  Sender: FDA-Public Use
  Company Number: US-BAYER-2015-388855

PATIENT
  Age: 70 Year
  Sex: Male

DRUGS (9)
  1. MORPHINE [Concomitant]
     Active Substance: MORPHINE
     Indication: PAIN
     Dosage: DAILY DOSE: 2 MG
     Route: 042
     Dates: start: 20140929, end: 20140930
  2. TRAMADOL. [Concomitant]
     Active Substance: TRAMADOL
     Dosage: DAILY DOSE 50 MG
     Route: 048
  3. SODIUM CHLORIDE. [Concomitant]
     Active Substance: SODIUM CHLORIDE
     Dosage: DAILY DOSE 1000 ML
     Route: 042
     Dates: start: 20140929
  4. AMBIEN [Concomitant]
     Active Substance: ZOLPIDEM TARTRATE
     Indication: INSOMNIA
     Dosage: 2.5 MG
     Route: 048
  5. INFLUENZA VIRUS VACCINE [INFLUENZA VACCINE] [Concomitant]
     Indication: ANTIVIRAL PROPHYLAXIS
     Dosage: DAILY DOSE: 0.5 ML
     Route: 030
     Dates: start: 20140930, end: 20140930
  6. ZOFRAN [Concomitant]
     Active Substance: ONDANSETRON HYDROCHLORIDE
     Indication: VOMITING
     Dosage: 4 MG
     Route: 048
     Dates: start: 201411
  7. ALEVE [Suspect]
     Active Substance: NAPROXEN SODIUM
     Indication: PAIN
     Dosage: UNK
     Route: 048
  8. ZOFRAN [Concomitant]
     Active Substance: ONDANSETRON HYDROCHLORIDE
     Indication: NAUSEA
     Dosage: 2 ML
     Route: 042
     Dates: start: 20140929, end: 20141001
  9. OXYCODONE [Concomitant]
     Active Substance: OXYCODONE
     Indication: PAIN
     Dosage: 10 MG
     Route: 048

REACTIONS (4)
  - White blood cells stool [None]
  - Occult blood positive [None]
  - Back pain [None]
  - Diarrhoea [Recovered/Resolved]

NARRATIVE: CASE EVENT DATE: 201409
